FAERS Safety Report 22259386 (Version 1)
Quarter: 2023Q2

REPORT INFORMATION
  Report Type: Spontaneous
  Country: CN (occurrence: CN)
  Receive Date: 20230427
  Receipt Date: 20230427
  Transmission Date: 20230721
  Serious: Yes (Disabling, Other)
  Sender: FDA-Public Use
  Company Number: CN-009507513-2304CHN009625

PATIENT
  Age: 89 Year
  Sex: Male
  Weight: 50 kg

DRUGS (4)
  1. CILASTATIN SODIUM\IMIPENEM [Suspect]
     Active Substance: CILASTATIN SODIUM\IMIPENEM
     Indication: Sepsis
     Dosage: 0.5 G, Q12H
     Route: 041
     Dates: start: 20230406, end: 20230410
  2. AMBROXOL HYDROCHLORIDE [Concomitant]
     Active Substance: AMBROXOL HYDROCHLORIDE
     Indication: Sputum abnormal
     Dosage: 30 MG, Q12H
     Route: 041
     Dates: start: 20230406, end: 20230410
  3. SODIUM CHLORIDE [Concomitant]
     Active Substance: SODIUM CHLORIDE
     Indication: Medication dilution
     Dosage: 100 ML, Q12H
     Route: 041
     Dates: start: 20230406, end: 20230410
  4. SODIUM CHLORIDE [Concomitant]
     Active Substance: SODIUM CHLORIDE
     Dosage: 100 ML, Q12H, IV DRIP
     Route: 041
     Dates: start: 20230406, end: 20230410

REACTIONS (5)
  - Sepsis [Unknown]
  - Blood bilirubin unconjugated increased [Recovering/Resolving]
  - Bile acids increased [Recovering/Resolving]
  - Jaundice [Unknown]
  - Blood bilirubin increased [Recovering/Resolving]

NARRATIVE: CASE EVENT DATE: 20230401
